FAERS Safety Report 12443596 (Version 1)
Quarter: 2016Q2

REPORT INFORMATION
  Report Type: Spontaneous
  Country: US (occurrence: US)
  Receive Date: 20160607
  Receipt Date: 20160607
  Transmission Date: 20160815
  Serious: No
  Sender: FDA-Public Use
  Company Number: GXBR2016US000446

PATIENT
  Age: 74 Year
  Sex: Female
  Weight: 62.59 kg

DRUGS (1)
  1. DILTIAZEM HYDROCHLORIDE ACTAVIS [Suspect]
     Active Substance: DILTIAZEM HYDROCHLORIDE
     Indication: HYPERTENSION
     Dosage: 180 MG, 2QD
     Route: 048
     Dates: start: 20151223

REACTIONS (1)
  - Tongue discolouration [Not Recovered/Not Resolved]

NARRATIVE: CASE EVENT DATE: 20151224
